FAERS Safety Report 19535395 (Version 2)
Quarter: 2022Q4

REPORT INFORMATION
  Report Type: Spontaneous
  Country: DE (occurrence: DE)
  Receive Date: 20210713
  Receipt Date: 20221115
  Transmission Date: 20230113
  Serious: Yes (Life-Threatening, Hospitalization, Other)
  Sender: FDA-Public Use
  Company Number: DE-NOVARTISPH-NVSC2021DE156501

PATIENT
  Age: 61 Year
  Sex: Male

DRUGS (16)
  1. ARIPIPRAZOLE [Suspect]
     Active Substance: ARIPIPRAZOLE
     Indication: Depression
     Dosage: 10 MG
     Route: 065
  2. ARIPIPRAZOLE [Suspect]
     Active Substance: ARIPIPRAZOLE
     Indication: Bipolar disorder
     Dosage: 1 MG, QD
     Route: 065
     Dates: start: 20201031, end: 20201103
  3. QUETIAPINE [Suspect]
     Active Substance: QUETIAPINE
     Indication: Product used for unknown indication
     Dosage: 50 MG, QD
     Route: 065
     Dates: start: 20201006, end: 20201008
  4. QUETIAPINE [Suspect]
     Active Substance: QUETIAPINE
     Dosage: 100 MG, QD
     Route: 065
     Dates: start: 20201009, end: 20201012
  5. QUETIAPINE [Suspect]
     Active Substance: QUETIAPINE
     Dosage: 150 MG, QD
     Route: 065
     Dates: start: 20201013, end: 20201014
  6. QUETIAPINE [Suspect]
     Active Substance: QUETIAPINE
     Dosage: 200 MG, QD
     Route: 065
     Dates: start: 20201015, end: 20201019
  7. QUETIAPINE [Suspect]
     Active Substance: QUETIAPINE
     Dosage: 250 MG
     Route: 065
     Dates: start: 20201020, end: 20201026
  8. QUETIAPINE [Suspect]
     Active Substance: QUETIAPINE
     Dosage: 150 MG, QD
     Route: 065
     Dates: start: 20201028, end: 20201029
  9. QUETIAPINE [Suspect]
     Active Substance: QUETIAPINE
     Dosage: 100 MG, QD
     Route: 065
     Dates: start: 20201030, end: 20201030
  10. LITHIUM CARBONATE [Suspect]
     Active Substance: LITHIUM CARBONATE
     Indication: Product used for unknown indication
     Dosage: 450 MG
     Route: 065
     Dates: end: 20201103
  11. PANTOPRAZOLE [Concomitant]
     Active Substance: PANTOPRAZOLE
     Indication: Product used for unknown indication
     Dosage: 40 MG, QD
     Route: 065
     Dates: start: 20200924, end: 20201103
  12. PREGABALIN [Concomitant]
     Active Substance: PREGABALIN
     Indication: Product used for unknown indication
     Dosage: 200 MG, QD
     Route: 065
     Dates: start: 20200924, end: 20200929
  13. PREGABALIN [Concomitant]
     Active Substance: PREGABALIN
     Dosage: 225 MG, QD
     Route: 065
     Dates: start: 20200930, end: 20201103
  14. PREGABALIN [Concomitant]
     Active Substance: PREGABALIN
     Dosage: 7.5 MG, QD
     Route: 065
     Dates: start: 20200924, end: 20201103
  15. ZOPICLONE [Concomitant]
     Active Substance: ZOPICLONE
     Indication: Product used for unknown indication
     Dosage: 7.5 MG, QD
     Route: 065
     Dates: start: 20200924, end: 20201103
  16. TAMSULOSIN [Concomitant]
     Active Substance: TAMSULOSIN
     Indication: Product used for unknown indication
     Dosage: 0.4 MG, QD
     Route: 065
     Dates: start: 20200924, end: 20201103

REACTIONS (3)
  - Neuroleptic malignant syndrome [Recovered/Resolved]
  - Condition aggravated [Unknown]
  - Product use in unapproved indication [Unknown]

NARRATIVE: CASE EVENT DATE: 20201025
